FAERS Safety Report 10689293 (Version 3)
Quarter: 2015Q2

REPORT INFORMATION
  Report Type: Report from Study
  Country: CA (occurrence: CA)
  Receive Date: 20150105
  Receipt Date: 20150508
  Transmission Date: 20150821
  Serious: No
  Sender: FDA-Public Use
  Company Number: CA-JNJFOC-20090800816

PATIENT
  Age: 66 Year
  Sex: Female
  Weight: 95 kg

DRUGS (3)
  1. STELARA [Suspect]
     Active Substance: USTEKINUMAB
     Indication: PSORIASIS
     Route: 058
     Dates: end: 20100225
  2. STELARA [Suspect]
     Active Substance: USTEKINUMAB
     Indication: PSORIASIS
     Route: 058
     Dates: start: 20090318, end: 20090601
  3. STELARA [Suspect]
     Active Substance: USTEKINUMAB
     Indication: PSORIASIS
     Route: 058
     Dates: start: 20090219

REACTIONS (6)
  - Drug ineffective [Not Recovered/Not Resolved]
  - Liver function test abnormal [Unknown]
  - Pustular psoriasis [Recovering/Resolving]
  - Skin exfoliation [Unknown]
  - Psoriasis [Recovering/Resolving]
  - Dermatitis [Unknown]

NARRATIVE: CASE EVENT DATE: 20100512
